FAERS Safety Report 5188782-5 (Version None)
Quarter: 2006Q4

REPORT INFORMATION
  Report Type: 
  Country: None (occurrence: None)
  Receive Date: 20061214
  Receipt Date: 20061201
  Transmission Date: 20070319
  Serious: Yes (Other)
  Sender: FDA-Public Use
  Company Number: 2006US-04103

PATIENT
  Age: 42 Year

DRUGS (12)
  1. ISOTRETINOIN [Suspect]
     Dosage: 40 MG
     Dates: start: 20050301, end: 20060712
  2. TEMODAR [Concomitant]
  3. IRINOTACAN [Concomitant]
  4. AVASTIN [Concomitant]
  5. LOMUESTINE [Concomitant]
  6. RADIATION THERAPY [Concomitant]
  7. BACTRIM [Concomitant]
  8. KEPPRA [Concomitant]
  9. DEXAMETHASONE [Concomitant]
  10. SODIUM CHLORIDE [Concomitant]
  11. KYTRIL [Concomitant]
  12. AMEND [Concomitant]

REACTIONS (1)
  - NEOPLASM PROGRESSION [None]
